FAERS Safety Report 9670348 (Version 1)
Quarter: 2013Q4

REPORT INFORMATION
  Report Type: Spontaneous
  Country: JP (occurrence: JP)
  Receive Date: 20131105
  Receipt Date: 20131105
  Transmission Date: 20140711
  Serious: Yes (Other)
  Sender: FDA-Public Use
  Company Number: PHHY2013JP123136

PATIENT
  Age: 82 Year
  Sex: Male

DRUGS (2)
  1. VANCOMYCIN HYDROCHLORIDE [Suspect]
     Indication: STAPHYLOCOCCAL INFECTION
     Dosage: 1 G, QD
     Route: 042
     Dates: start: 20131007, end: 20131020
  2. INTRALIPOS [Concomitant]
     Route: 042

REACTIONS (2)
  - Blood potassium decreased [Unknown]
  - Hepatic function abnormal [Unknown]
